FAERS Safety Report 5489142-X (Version None)
Quarter: 2007Q4

REPORT INFORMATION
  Report Type: 
  Country: None (occurrence: None)
  Receive Date: 20071016
  Receipt Date: 20071005
  Transmission Date: 20080405
  Serious: Yes (Other)
  Sender: FDA-Public Use
  Company Number: 41462

PATIENT
  Age: 65 Year
  Sex: Male

DRUGS (1)
  1. DACARBAZINE [Suspect]
     Indication: METASTATIC MALIGNANT MELANOMA
     Dosage: 2050MG
     Dates: start: 20070420, end: 20070518

REACTIONS (3)
  - MEDICATION ERROR [None]
  - NEUTROPENIA [None]
  - OVERDOSE [None]
